FAERS Safety Report 10205072 (Version 1)
Quarter: 2014Q2

REPORT INFORMATION
  Report Type: Spontaneous
  Country: AU (occurrence: AU)
  Receive Date: 20140529
  Receipt Date: 20140529
  Transmission Date: 20141212
  Serious: Yes (Other)
  Sender: FDA-Public Use
  Company Number: PHHY2014AU065318

PATIENT
  Sex: Male

DRUGS (3)
  1. ACLASTA [Suspect]
     Dosage: UNK
     Route: 042
  2. ACLASTA [Suspect]
     Dosage: UNK
     Route: 042
  3. METHOTREXATE [Concomitant]
     Dosage: UNK

REACTIONS (5)
  - Osteoporosis [Unknown]
  - Psoriasis [Unknown]
  - Arthritis [Unknown]
  - Hypertension [Unknown]
  - Dry mouth [Unknown]
